FAERS Safety Report 5956972-7 (Version None)
Quarter: 2008Q4

REPORT INFORMATION
  Report Type: 
  Country: None (occurrence: None)
  Receive Date: 20081118
  Receipt Date: 20081110
  Transmission Date: 20090506
  Serious: Yes (Other)
  Sender: FDA-Public Use
  Company Number: US-PFIZER INC-2008014465

PATIENT
  Sex: Female
  Weight: 57 kg

DRUGS (4)
  1. DEPO-PROVERA SUSPENSION/INJ [Suspect]
     Indication: CONTRACEPTION
     Route: 030
     Dates: start: 19900101, end: 19900101
  2. DEPO-PROVERA SUSPENSION/INJ [Suspect]
     Route: 030
     Dates: start: 20070701, end: 20070701
  3. NORPLANT [Concomitant]
  4. XANAX [Concomitant]
     Indication: ANXIETY

REACTIONS (7)
  - BREAST ENLARGEMENT [None]
  - BREAST PAIN [None]
  - DEPRESSED MOOD [None]
  - EMOTIONAL DISORDER [None]
  - HAEMORRHOIDS [None]
  - INAPPROPRIATE SCHEDULE OF DRUG ADMINISTRATION [None]
  - OSTEOPENIA [None]
